FAERS Safety Report 15869310 (Version 1)
Quarter: 2019Q1

REPORT INFORMATION
  Report Type: Report from Study
  Country: US (occurrence: US)
  Receive Date: 20190125
  Receipt Date: 20190125
  Transmission Date: 20190417
  Serious: Yes (Hospitalization)
  Sender: FDA-Public Use
  Company Number: US-ACTELION-A-NJ2018-179248

PATIENT
  Age: 56 Year
  Sex: Female

DRUGS (2)
  1. SILDENAFIL. [Concomitant]
     Active Substance: SILDENAFIL
  2. OPSUMIT [Suspect]
     Active Substance: MACITENTAN
     Indication: PULMONARY ARTERIAL HYPERTENSION
     Dosage: 10 MG, QD
     Route: 048
     Dates: start: 20180821

REACTIONS (9)
  - Fluid retention [Unknown]
  - Cardiac disorder [Unknown]
  - Nasal congestion [Unknown]
  - Sinus disorder [Unknown]
  - Peripheral swelling [Not Recovered/Not Resolved]
  - Headache [Unknown]
  - Therapy non-responder [Unknown]
  - Bronchitis [Unknown]
  - Paranasal sinus discomfort [Not Recovered/Not Resolved]

NARRATIVE: CASE EVENT DATE: 20180912
